FAERS Safety Report 18841847 (Version 8)
Quarter: 2021Q2

REPORT INFORMATION
  Report Type: Report from Study
  Country: JP (occurrence: JP)
  Receive Date: 20210203
  Receipt Date: 20210426
  Transmission Date: 20210717
  Serious: Yes (Hospitalization)
  Sender: FDA-Public Use
  Company Number: JP-EISAI MEDICAL RESEARCH-EC-2021-087422

PATIENT
  Age: 59 Year
  Sex: Male
  Weight: 57.7 kg

DRUGS (26)
  1. CALONAL [Concomitant]
     Active Substance: ACETAMINOPHEN
     Dates: start: 20201204
  2. LUNESTA [Concomitant]
     Active Substance: ESZOPICLONE
     Dates: start: 20200814
  3. PARIET [Concomitant]
     Active Substance: RABEPRAZOLE SODIUM
     Dates: start: 20200817
  4. SENNOSIDES. [Concomitant]
     Active Substance: SENNOSIDES
     Dates: start: 20200817
  5. DENOTAS CHEWABLE COMBINATION TABLETS [Concomitant]
     Active Substance: CALCIUM CARBONATE\CHOLECALCIFEROL\MAGNESIUM CARBONATE
     Dates: start: 20200825
  6. TENELIA [Concomitant]
     Active Substance: TENELIGLIPTIN
     Dates: start: 20200926
  7. NARURAPID [Concomitant]
     Active Substance: HYDROMORPHONE HYDROCHLORIDE
     Dates: start: 20201209
  8. HEPARINOID [Concomitant]
     Active Substance: CHONDROITIN SULFATE (BOVINE)
     Dates: start: 20201009
  9. MAGNESIUM OXIDE. [Concomitant]
     Active Substance: MAGNESIUM OXIDE
     Dates: start: 20200821
  10. SATOSALBE [Concomitant]
     Active Substance: ZINC OXIDE
     Dates: start: 20201029
  11. ZOLPIDEM TARTRATE. [Concomitant]
     Active Substance: ZOLPIDEM TARTRATE
     Dates: start: 20201111
  12. LENVATINIB [Suspect]
     Active Substance: LENVATINIB
     Indication: NON-SMALL CELL LUNG CANCER METASTATIC
     Route: 048
     Dates: start: 20200925, end: 20210103
  13. LYRICA [Concomitant]
     Active Substance: PREGABALIN
     Dates: start: 20200814
  14. CLOBETASOL PROPIONATE. [Concomitant]
     Active Substance: CLOBETASOL PROPIONATE
     Dates: start: 20201029
  15. DECADRON [Concomitant]
     Active Substance: DEXAMETHASONE
     Dates: start: 20210111, end: 20210114
  16. CALONAL [Concomitant]
     Active Substance: ACETAMINOPHEN
     Dates: start: 20200811
  17. NARUSUS [Concomitant]
     Active Substance: HYDROMORPHONE HYDROCHLORIDE
     Dates: start: 20201214
  18. PEMBROLIZUMAB. [Suspect]
     Active Substance: PEMBROLIZUMAB
     Route: 041
     Dates: start: 20210108, end: 20210108
  19. AZ [Concomitant]
     Dosage: RINSE
     Dates: start: 20201118
  20. GLYCERIN. [Concomitant]
     Active Substance: GLYCERIN
     Dosage: RINSE
     Dates: start: 20201118
  21. BILANOA [Concomitant]
     Active Substance: BILASTINE
     Dates: start: 20210119
  22. PEMBROLIZUMAB. [Suspect]
     Active Substance: PEMBROLIZUMAB
     Indication: NON-SMALL CELL LUNG CANCER METASTATIC
     Route: 041
     Dates: start: 20200925, end: 20201218
  23. SYMPROIC [Concomitant]
     Active Substance: NALDEMEDINE
     Dates: start: 20200819
  24. CELECOX [Concomitant]
     Active Substance: CELECOXIB
     Dates: start: 20200819
  25. BETAMETHASONE BUTYRATE PROPIONATE [Concomitant]
     Active Substance: BETAMETHASONE BUTYRATE PROPIONATE
     Dates: start: 20201009
  26. SODIUM FERROUS CITRATE [Concomitant]
     Active Substance: SODIUM FERROUS CITRATE
     Dates: start: 20201210

REACTIONS (2)
  - Pneumonitis [Recovering/Resolving]
  - Pneumonia bacterial [Recovered/Resolved]

NARRATIVE: CASE EVENT DATE: 20210126
